FAERS Safety Report 8093181-2 (Version None)
Quarter: 2012Q1

REPORT INFORMATION
  Report Type: 
  Country: None (occurrence: None)
  Receive Date: 20120131
  Receipt Date: 20120119
  Transmission Date: 20120608
  Serious: Yes (Hospitalization)
  Sender: FDA-Public Use
  Company Number: RU-ELI_LILLY_AND_COMPANY-RU201201006951

PATIENT
  Age: 69 Year
  Sex: Male

DRUGS (3)
  1. LOSARTAN POTASSIUM [Concomitant]
     Dosage: UNK
  2. HUMALOG [Suspect]
     Route: 058
  3. LANTUS [Concomitant]
     Dosage: UNK
     Route: 058

REACTIONS (1)
  - CATARACT [None]
